FAERS Safety Report 6470892-3 (Version None)
Quarter: 2009Q4

REPORT INFORMATION
  Report Type: 
  Country: None (occurrence: None)
  Receive Date: 20091203
  Receipt Date: 20080207
  Transmission Date: 20100525
  Serious: Yes (Other)
  Sender: FDA-Public Use
  Company Number: US-ELI_LILLY_AND_COMPANY-US200801001086

PATIENT
  Sex: Female

DRUGS (6)
  1. FORTEO [Suspect]
     Indication: OSTEOPOROSIS
     Dosage: UNK, UNK
     Dates: start: 20071212
  2. FORTEO [Suspect]
  3. VITAMINS [Concomitant]
  4. LIPITOR [Concomitant]
  5. BABY ASPIRIN [Concomitant]
  6. TYLENOL                                 /SCH/ [Concomitant]
     Indication: BACK PAIN

REACTIONS (8)
  - EYE DEGENERATIVE DISORDER [None]
  - EYE DISORDER [None]
  - FEELING ABNORMAL [None]
  - POST PROCEDURAL HAEMATOMA [None]
  - POST PROCEDURAL HAEMORRHAGE [None]
  - SWELLING [None]
  - VISUAL ACUITY REDUCED [None]
  - VISUAL IMPAIRMENT [None]
